FAERS Safety Report 13964287 (Version 7)
Quarter: 2023Q2

REPORT INFORMATION
  Report Type: Report from Study
  Country: US (occurrence: US)
  Receive Date: 20170913
  Receipt Date: 20230602
  Transmission Date: 20230722
  Serious: Yes (Hospitalization, Other)
  Sender: FDA-Public Use
  Company Number: US-BAYER-2017-169175

PATIENT
  Age: 52 Year
  Sex: Female

DRUGS (7)
  1. MAGNEVIST [Suspect]
     Active Substance: GADOPENTETATE DIMEGLUMINE
     Indication: Magnetic resonance imaging
     Dosage: 22 TIMES
     Route: 042
  2. MAGNEVIST [Suspect]
     Active Substance: GADOPENTETATE DIMEGLUMINE
     Indication: Magnetic resonance imaging
     Dosage: UNK
     Dates: start: 200901, end: 200901
  3. MAGNEVIST [Suspect]
     Active Substance: GADOPENTETATE DIMEGLUMINE
     Indication: Magnetic resonance imaging
     Dosage: UNK UNK, ONCE
     Route: 042
     Dates: start: 20151103, end: 20151103
  4. MAGNEVIST [Suspect]
     Active Substance: GADOPENTETATE DIMEGLUMINE
     Indication: Magnetic resonance imaging
     Dosage: UNK, ONCE
     Route: 042
     Dates: start: 20170509, end: 20170509
  5. GADAVIST [Suspect]
     Active Substance: GADOBUTROL
     Dosage: TWICE
  6. OMNISCAN [Suspect]
     Active Substance: GADODIAMIDE
     Dosage: 5 TIMES
  7. MULTIHANCE [Suspect]
     Active Substance: GADOBENATE DIMEGLUMINE
     Dosage: TWICE

REACTIONS (49)
  - Gadolinium deposition disease [Unknown]
  - Toxicity to various agents [Unknown]
  - Cognitive disorder [Unknown]
  - Disturbance in attention [Unknown]
  - Headache [Unknown]
  - Loss of proprioception [Unknown]
  - Nystagmus [Unknown]
  - Deafness unilateral [Unknown]
  - Dry eye [Unknown]
  - Dry mouth [Unknown]
  - Dysgeusia [Unknown]
  - Bone pain [Unknown]
  - Myalgia [Unknown]
  - Muscle twitching [Unknown]
  - Gait disturbance [Unknown]
  - Fall [Unknown]
  - Fine motor skill dysfunction [Unknown]
  - Hypoaesthesia [Unknown]
  - Cough [Unknown]
  - Nausea [Unknown]
  - Dyspepsia [Unknown]
  - Abdominal pain upper [Unknown]
  - Chest pain [Unknown]
  - Oesophageal pain [Unknown]
  - Palpitations [Unknown]
  - Insomnia [Unknown]
  - Depression [Unknown]
  - Anxiety [Unknown]
  - Body temperature fluctuation [Unknown]
  - Migraine [Unknown]
  - Pain [Unknown]
  - Hypoaesthesia [Unknown]
  - Confusional state [Unknown]
  - Muscle contractions involuntary [Unknown]
  - Dry eye [Unknown]
  - Dry mouth [Unknown]
  - Arthralgia [Unknown]
  - Taste disorder [Unknown]
  - Torticollis [Unknown]
  - Visual impairment [Unknown]
  - Vertigo [Unknown]
  - Nontherapeutic agent urine positive [Unknown]
  - Back pain [Unknown]
  - Contrast media deposition [Unknown]
  - Tinnitus [Unknown]
  - Vitreous floaters [Unknown]
  - Haematuria [None]
  - Fibrosis [None]
  - Skin fibrosis [None]

NARRATIVE: CASE EVENT DATE: 20080101
